FAERS Safety Report 8319108-3 (Version None)
Quarter: 2012Q2

REPORT INFORMATION
  Report Type: 
  Country: None (occurrence: None)
  Receive Date: 20120427
  Receipt Date: 20120420
  Transmission Date: 20120825
  Serious: Yes (Disabling)
  Sender: FDA-Public Use
  Company Number: US-MERCK-1204USA02843

PATIENT
  Sex: Female

DRUGS (1)
  1. FOSAMAX [Suspect]
     Route: 065
     Dates: start: 20000101, end: 20080101

REACTIONS (6)
  - BONE DISORDER [None]
  - MULTIPLE INJURIES [None]
  - ECONOMIC PROBLEM [None]
  - PAIN [None]
  - FEMUR FRACTURE [None]
  - EMOTIONAL DISTRESS [None]
